FAERS Safety Report 19914174 (Version 1)
Quarter: 2021Q4

REPORT INFORMATION
  Report Type: Spontaneous
  Country: US (occurrence: US)
  Receive Date: 20211005
  Receipt Date: 20211005
  Transmission Date: 20220304
  Serious: No
  Sender: FDA-Public Use
  Company Number: US-ACCORD-231190

PATIENT
  Age: 51 Year
  Sex: Female

DRUGS (1)
  1. ESCITALOPRAM OXALATE [Suspect]
     Active Substance: ESCITALOPRAM OXALATE
     Indication: Product used for unknown indication
     Dosage: STRENGTH: 20 MG

REACTIONS (2)
  - Product substitution issue [Unknown]
  - Malaise [Unknown]

NARRATIVE: CASE EVENT DATE: 20210629
